FAERS Safety Report 6952897-9 (Version None)
Quarter: 2010Q3

REPORT INFORMATION
  Report Type: 
  Country: None (occurrence: None)
  Receive Date: 20100829
  Receipt Date: 20100520
  Transmission Date: 20110219
  Serious: No
  Sender: FDA-Public Use
  Company Number: US-ABBOTT-10P-163-0645883-00

PATIENT
  Sex: Male
  Weight: 93.978 kg

DRUGS (6)
  1. NIASPAN [Suspect]
     Indication: BLOOD CHOLESTEROL INCREASED
     Dosage: CLOSE TO BED TIME
     Route: 048
     Dates: start: 20100429
  2. CRESTOR [Concomitant]
     Indication: PRODUCT USED FOR UNKNOWN INDICATION
  3. FISH OIL [Concomitant]
     Indication: PRODUCT USED FOR UNKNOWN INDICATION
  4. PROTEIN DRINK [Concomitant]
     Indication: PRODUCT USED FOR UNKNOWN INDICATION
  5. THYROID MEDICATION [Concomitant]
     Indication: THYROID DISORDER
  6. DIABETES MEDICATION [Concomitant]
     Indication: DIABETES MELLITUS

REACTIONS (1)
  - PRURITUS [None]
